FAERS Safety Report 14283856 (Version 2)
Quarter: 2018Q3

REPORT INFORMATION
  Report Type: Report from Study
  Country: US (occurrence: US)
  Receive Date: 20171214
  Receipt Date: 20180813
  Transmission Date: 20181010
  Serious: No
  Sender: FDA-Public Use
  Company Number: PHEH2017US040077

PATIENT
  Sex: Female
  Weight: 69.39 kg

DRUGS (2)
  1. COSENTYX [Suspect]
     Active Substance: SECUKINUMAB
     Indication: PSORIATIC ARTHROPATHY
     Dosage: 150 MG, QMO
     Route: 058
     Dates: start: 201610
  2. LASIX [Suspect]
     Active Substance: FUROSEMIDE
     Indication: DEHYDRATION
     Route: 065

REACTIONS (6)
  - Hypotension [Unknown]
  - Headache [Unknown]
  - General physical health deterioration [Unknown]
  - Dehydration [Unknown]
  - Blood glucose decreased [Unknown]
  - Inappropriate schedule of drug administration [Unknown]
